FAERS Safety Report 5211929-9 (Version None)
Quarter: 2007Q1

REPORT INFORMATION
  Report Type: 
  Country: None (occurrence: None)
  Receive Date: 20070118
  Receipt Date: 20070109
  Transmission Date: 20070707
  Serious: Yes (Hospitalization, Other)
  Sender: FDA-Public Use
  Company Number: 2007GB00035

PATIENT
  Age: 75 Year
  Sex: Female

DRUGS (6)
  1. QUETIAPINE FUMARATE [Suspect]
     Indication: DEPRESSION
     Route: 048
     Dates: start: 20061024, end: 20061210
  2. QUETIAPINE FUMARATE [Suspect]
     Indication: PARANOIA
     Route: 048
     Dates: start: 20061024, end: 20061210
  3. QUETIAPINE FUMARATE [Suspect]
     Indication: HALLUCINATION, VISUAL
     Route: 048
     Dates: start: 20061024, end: 20061210
  4. CITALOPRAM HYDROBROMIDE [Concomitant]
     Indication: DEPRESSION
     Route: 048
     Dates: start: 20061024
  5. DIAZEPAM [Concomitant]
     Indication: AGITATION
     Route: 048
     Dates: start: 20061024
  6. FERROUS FUMARATE [Concomitant]
     Indication: ANAEMIA
     Route: 048

REACTIONS (5)
  - CEREBRAL INFARCTION [None]
  - DYSTONIA [None]
  - MYOCLONUS [None]
  - NYSTAGMUS [None]
  - PARKINSONISM [None]
